FAERS Safety Report 16255487 (Version 1)
Quarter: 2019Q2

REPORT INFORMATION
  Report Type: Spontaneous
  Country: DE (occurrence: DE)
  Receive Date: 20190430
  Receipt Date: 20190430
  Transmission Date: 20190711
  Serious: Yes (Hospitalization, Disabling, Other)
  Sender: FDA-Public Use
  Company Number: DE-AUROBINDO-AUR-APL-2019-022252

PATIENT

DRUGS (7)
  1. ALENDRONIC ACID [Suspect]
     Active Substance: ALENDRONIC ACID
     Indication: OSTEOPOROSIS
     Dosage: 70 MILLIGRAM, EVERY WEEK (DAILY DOSE: 70 MG MILLGRAM(S) EVERY WEEKS)
     Route: 048
  2. L-THYROX [Suspect]
     Active Substance: LEVOTHYROXINE SODIUM
     Indication: PROPHYLAXIS
     Dosage: UNK
     Route: 048
  3. KALINOR (POTASSIUM CHLORIDE) [Suspect]
     Active Substance: POTASSIUM CHLORIDE
     Indication: HYPOKALAEMIA
     Dosage: 1 UNK, ONCE A DAY
     Route: 048
  4. HCTZ [Suspect]
     Active Substance: HYDROCHLOROTHIAZIDE
     Indication: HYPERTENSION
     Dosage: 1UNK, ONCE A DAY
     Route: 048
  5. PREDNISOLON [Suspect]
     Active Substance: PREDNISOLONE
     Indication: RHEUMATOID ARTHRITIS
     Dosage: 3 MILLIGRAM, ONCE A DAY (DAILY DOSE: 3 MG MILLGRAM(S) EVERY DAYS)
     Route: 048
  6. ROACTEMRA [Suspect]
     Active Substance: TOCILIZUMAB
     Dosage: 480 MILLIGRAM
     Route: 042
     Dates: start: 20140430
  7. ROACTEMRA [Suspect]
     Active Substance: TOCILIZUMAB
     Indication: RHEUMATOID ARTHRITIS
     Dosage: 480 MILLIGRAM, 4 WEEK (THERAPY RECEIVED TREATMENT ON 03/SEP/2013 AND 02/OCT/2013 AND 30/OCT/2013)
     Route: 042
     Dates: start: 20130227, end: 20131204

REACTIONS (3)
  - Purulence [Recovered/Resolved with Sequelae]
  - Comminuted fracture [Recovered/Resolved with Sequelae]
  - Fall [Unknown]

NARRATIVE: CASE EVENT DATE: 20140106
